FAERS Safety Report 6803600-4 (Version None)
Quarter: 2010Q2

REPORT INFORMATION
  Report Type: 
  Country: None (occurrence: None)
  Receive Date: 20100628
  Receipt Date: 20100618
  Transmission Date: 20101027
  Serious: Yes (Death)
  Sender: FDA-Public Use
  Company Number: BR-PFIZER INC-2010076840

PATIENT
  Age: 68 Year
  Sex: Female

DRUGS (1)
  1. VIAGRA [Suspect]
     Route: 048

REACTIONS (1)
  - HYPERTENSION [None]
